FAERS Safety Report 5869912-6 (Version None)
Quarter: 2008Q3

REPORT INFORMATION
  Report Type: 
  Country: None (occurrence: None)
  Receive Date: 20080904
  Receipt Date: 20080826
  Transmission Date: 20090109
  Serious: Yes (Other)
  Sender: FDA-Public Use
  Company Number: PHEH2007US05548

PATIENT
  Sex: Male

DRUGS (44)
  1. AREDIA [Suspect]
  2. ZOMETA [Suspect]
  3. PRILOSEC [Concomitant]
     Dosage: 20 MG
  4. PREVACID [Concomitant]
     Dosage: 30 MG
  5. METOCLOPRAMIDE [Concomitant]
     Dosage: 10 MG
  6. NITROSTAT [Concomitant]
     Dosage: 0.4 MG
  7. MINITRAN [Concomitant]
     Dosage: 0.2 MG/HR
  8. LEVAQUIN [Concomitant]
     Dosage: 500 MG
  9. PROFEN II DM [Concomitant]
  10. HYDROCODONE W/PARACETAMOL [Concomitant]
     Dosage: 7.5 MG/500 MG
  11. FLOVENT [Concomitant]
     Dosage: 44 MCG
  12. NEXIUM [Concomitant]
     Dosage: 40 MG
  13. ENDOCET [Concomitant]
     Dosage: 5/325 MG
  14. METOPROLOL TARTRATE [Concomitant]
     Dosage: 50 MG
  15. ALPRAZOLAM [Concomitant]
     Dosage: 0.25 MG
  16. NYSTATIN [Concomitant]
     Dosage: 10,000 U
  17. MORPHINE [Concomitant]
     Dosage: 20 MG/ML
  18. AMOXICILLIN [Concomitant]
     Dosage: 500 MG
  19. BIAXIN [Concomitant]
     Dosage: 250 MG
  20. ZITHROMAX [Concomitant]
  21. OXYCODONE HCL [Concomitant]
     Dosage: 5 MG
  22. DURAGESIC-100 [Concomitant]
     Dosage: 25 MCG/HR
  23. AMITRIPTYLINE HCL [Concomitant]
     Dosage: 25 MG
  24. SYNTHROID [Concomitant]
     Dosage: 25 MCG
  25. DEXAMETHASONE TAB [Concomitant]
     Dosage: 4 MG
  26. EFFEXOR XR [Concomitant]
     Dosage: 37.5 MG
  27. ACTIQ [Concomitant]
     Dosage: 400 MCG
  28. CIPRO [Concomitant]
     Dosage: 250 MG
  29. CARISOPRODOL [Concomitant]
     Dosage: 350 MG
  30. PENICILLIN VK [Concomitant]
     Dosage: 500 MG
  31. PREDNISONE TAB [Concomitant]
     Dosage: 20 MG
  32. PROCHLORPERAZINE [Concomitant]
     Dosage: 10 MG
  33. PAXIL [Concomitant]
     Dosage: 12.5 MG
  34. FAMVIR                                  /NET/ [Concomitant]
     Dosage: 500 MG
  35. VALTREX [Concomitant]
     Dosage: 500 MG
  36. PROVIGIL [Concomitant]
     Dosage: 200 MG
  37. CYMBALTA [Concomitant]
     Dosage: 60 MG
  38. LACTULOSE [Concomitant]
     Dosage: 10 GM/15 ML
  39. GLYBURIDE [Concomitant]
     Dosage: 1.25 MG
  40. FLUCONAZOLE [Concomitant]
     Dosage: 100 MG
  41. COMPRO [Concomitant]
     Dosage: 25 MG
  42. AVELOX [Concomitant]
     Dosage: 300 MG
  43. CHLORHEXIDINE GLUCONATE [Concomitant]
     Dosage: 0.12%
  44. SERTRALINE [Concomitant]
     Dosage: 50 MG

REACTIONS (6)
  - ANHEDONIA [None]
  - ANXIETY [None]
  - INJURY [None]
  - NEOPLASM MALIGNANT [None]
  - OSTEONECROSIS [None]
  - PAIN [None]
